FAERS Safety Report 18656690 (Version 10)
Quarter: 2021Q2

REPORT INFORMATION
  Report Type: Spontaneous
  Country: PL (occurrence: PL)
  Receive Date: 20201224
  Receipt Date: 20210602
  Transmission Date: 20210717
  Serious: Yes (Hospitalization, Other)
  Sender: FDA-Public Use
  Company Number: PL-AUROBINDO-AUR-APL-2020-062536

PATIENT
  Age: 68 Year
  Sex: Male

DRUGS (32)
  1. FLUCONAZOLE. [Suspect]
     Active Substance: FLUCONAZOLE
     Indication: ANTIBIOTIC PROPHYLAXIS
     Dosage: 100 MILLIGRAM, TWO TIMES A DAY
     Route: 048
  2. FLUCONAZOLE. [Interacting]
     Active Substance: FLUCONAZOLE
     Indication: PRURITUS GENITAL
     Dosage: 10 MILLIGRAM, ONCE A DAY
     Route: 065
  3. FUROSEMIDE. [Interacting]
     Active Substance: FUROSEMIDE
     Indication: ATRIAL FIBRILLATION
     Dosage: 40 MILLIGRAM, ONCE A DAY (AFTER A STROKE)
     Route: 048
  4. CETIRIZINE [Suspect]
     Active Substance: CETIRIZINE HYDROCHLORIDE
     Indication: PRURITUS GENITAL
     Dosage: 10 MILLIGRAM, ONCE A DAY
     Route: 065
  5. CIPROBAY [CIPROFLOXACIN] [Suspect]
     Active Substance: CIPROFLOXACIN
     Indication: INFECTION
  6. TRAZODON [Concomitant]
     Active Substance: TRAZODONE HYDROCHLORIDE
     Indication: SOMNOLENCE
  7. RIVAROXABAN [Interacting]
     Active Substance: RIVAROXABAN
     Indication: PRODUCT USED FOR UNKNOWN INDICATION
  8. CIPROFLOXACIN. [Interacting]
     Active Substance: CIPROFLOXACIN
     Indication: ANTIBIOTIC PROPHYLAXIS
     Dosage: 1000 MILLIGRAM
     Route: 048
  9. QUETIAPINE. [Concomitant]
     Active Substance: QUETIAPINE
     Indication: PRODUCT USED FOR UNKNOWN INDICATION
     Dosage: UNK
     Route: 065
  10. METOPROLOL FILM COATED TABLETS [Interacting]
     Active Substance: METOPROLOL
     Indication: PRODUCT USED FOR UNKNOWN INDICATION
     Dosage: 10 MILLIGRAM
     Route: 065
  11. CIPROBAY [CIPROFLOXACIN] [Suspect]
     Active Substance: CIPROFLOXACIN
     Indication: ANTIBIOTIC PROPHYLAXIS
     Dosage: 500 MILLIGRAM, ONCE A DAY
     Route: 048
  12. CIPROBAY [CIPROFLOXACIN] [Suspect]
     Active Substance: CIPROFLOXACIN
     Indication: PENILE INFECTION
  13. CIPROFLOXACIN. [Interacting]
     Active Substance: CIPROFLOXACIN
     Indication: INFECTION
     Dosage: 500 MILLIGRAM, TWO TIMES A DAY
     Route: 048
  14. TRAZODON [Concomitant]
     Active Substance: TRAZODONE HYDROCHLORIDE
     Indication: INSOMNIA
     Dosage: 50 MILLIGRAM (THREE HOURS BEFORE SLEEPING WAS ADVISED)
     Route: 065
  15. ATORVASTATIN [Interacting]
     Active Substance: ATORVASTATIN
     Indication: PRODUCT USED FOR UNKNOWN INDICATION
  16. FLUCONAZOLE. [Interacting]
     Active Substance: FLUCONAZOLE
     Indication: INFECTION
  17. QUETIAPINE FILM COATED TABLETS [Interacting]
     Active Substance: QUETIAPINE
     Dosage: 25 MILLIGRAM, ONCE A DAY AT BEDTIME
     Route: 065
  18. CIPROBAY [CIPROFLOXACIN] [Suspect]
     Active Substance: CIPROFLOXACIN
     Indication: INFECTION
  19. CIPROFLOXACIN. [Interacting]
     Active Substance: CIPROFLOXACIN
     Indication: PRURITUS GENITAL
     Dosage: 500 MILLIGRAM, ONCE A DAY
     Route: 048
  20. DIAZEPAM. [Interacting]
     Active Substance: DIAZEPAM
     Indication: INSOMNIA
     Dosage: 10 MILLIGRAM, ONCE A DAY (QD HALF HOUR BEFORE BEDTIME)
     Route: 065
  21. QUETIAPINE. [Concomitant]
     Active Substance: QUETIAPINE
     Dosage: 25 MILLIGRAM, ONCE A DAY(25 MG AT BEDTIME)
     Route: 065
  22. FUROSEMIDE. [Interacting]
     Active Substance: FUROSEMIDE
     Indication: PRODUCT USED FOR UNKNOWN INDICATION
  23. CIPROBAY [CIPROFLOXACIN] [Suspect]
     Active Substance: CIPROFLOXACIN
     Indication: PRURITUS GENITAL
     Dosage: 500 MILLIGRAM, TWO TIMES A DAY
     Route: 048
  24. XARELTO [Interacting]
     Active Substance: RIVAROXABAN
     Indication: PRODUCT USED FOR UNKNOWN INDICATION
     Dosage: 20 MILLIGRAM
     Route: 048
  25. QUETIAPINE. [Concomitant]
     Active Substance: QUETIAPINE
     Dosage: 50 MILLIGRAM, ONCE A DAY(50 MG AT BEDTIME )
     Route: 065
  26. ATORVASTATIN [Interacting]
     Active Substance: ATORVASTATIN
     Indication: ATRIAL FIBRILLATION
     Dosage: 40 MILLIGRAM, ONCE A DAY
     Route: 048
  27. FLUCONAZOLE. [Interacting]
     Active Substance: FLUCONAZOLE
     Indication: PENILE INFECTION
     Dosage: 100 MILLIGRAM, ONCE A DAY
     Route: 065
  28. METOPROLOL FILM COATED TABLETS [Interacting]
     Active Substance: METOPROLOL
     Indication: ATRIAL FIBRILLATION
     Dosage: 100 MILLIGRAM
     Route: 048
  29. QUETIAPINE FILM COATED TABLETS [Interacting]
     Active Substance: QUETIAPINE
     Indication: INSOMNIA
     Dosage: 50 MILLIGRAM, ONCE A DAY, AT BEDTIME
     Route: 065
  30. FLUCONAZOLE. [Interacting]
     Active Substance: FLUCONAZOLE
     Indication: INFECTION
  31. RIVAROXABAN [Interacting]
     Active Substance: RIVAROXABAN
     Indication: ATRIAL FIBRILLATION
     Dosage: 20 MILLIGRAM, ONCE A DAY
     Route: 048
  32. TRAZODON [Concomitant]
     Active Substance: TRAZODONE HYDROCHLORIDE
     Indication: SLEEP DISORDER

REACTIONS (16)
  - Pruritus genital [Recovered/Resolved]
  - Drug ineffective [Unknown]
  - Penis injury [Recovered/Resolved]
  - Contraindicated product administered [Unknown]
  - Off label use [Recovered/Resolved]
  - Pruritus [Recovered/Resolved]
  - Genital haemorrhage [Unknown]
  - Penile haemorrhage [Recovered/Resolved]
  - Somnolence [Recovered/Resolved]
  - Condition aggravated [Recovered/Resolved]
  - Product use in unapproved indication [Unknown]
  - Drug level increased [Unknown]
  - Drug interaction [Recovered/Resolved]
  - Haemorrhage [Recovered/Resolved]
  - Fall [Recovered/Resolved]
  - Insomnia [Unknown]
